FAERS Safety Report 23231643 (Version 1)
Quarter: 2023Q4

REPORT INFORMATION
  Report Type: Spontaneous
  Country: TH (occurrence: None)
  Receive Date: 20231127
  Receipt Date: 20231127
  Transmission Date: 20240109
  Serious: Yes (Death)
  Sender: FDA-Public Use
  Company Number: TH-ROCHE-3463691

PATIENT
  Age: 71 Year
  Sex: Male

DRUGS (2)
  1. ATEZOLIZUMAB [Suspect]
     Active Substance: ATEZOLIZUMAB
     Indication: Non-small cell lung cancer metastatic
     Dosage: CYCLE 1
     Route: 041
     Dates: start: 20210707
  2. ATEZOLIZUMAB [Suspect]
     Active Substance: ATEZOLIZUMAB
     Dosage: CYCLE 2
     Route: 041
     Dates: start: 20210728, end: 20210728

REACTIONS (2)
  - Septic shock [Fatal]
  - Gastrointestinal infection [Fatal]

NARRATIVE: CASE EVENT DATE: 20230501
